FAERS Safety Report 9617288 (Version 1)
Quarter: 2013Q4

REPORT INFORMATION
  Report Type: Spontaneous
  Country: FR (occurrence: FR)
  Receive Date: 20131011
  Receipt Date: 20131011
  Transmission Date: 20140711
  Serious: Yes (Hospitalization, Other)
  Sender: FDA-Public Use
  Company Number: FR-PFIZER INC-2013285777

PATIENT
  Age: 54 Year
  Sex: Female

DRUGS (12)
  1. EFFEXOR LP [Suspect]
     Indication: DEPRESSION
     Dosage: 75 MG, DAILY
     Route: 048
     Dates: start: 20130725, end: 20130813
  2. BACTRIM [Suspect]
     Indication: PROPHYLAXIS
     Dosage: 1 DF, DAILY
     Route: 048
     Dates: start: 20130725, end: 20130814
  3. INEXIUM [Suspect]
     Indication: GASTRIC ULCER
     Dosage: 40 MG, 2X/DAY
     Route: 048
     Dates: start: 20130805, end: 20130814
  4. INEXIUM [Suspect]
     Dosage: 40 MG, DAILY
     Route: 048
     Dates: start: 20130815
  5. TARDYFERON B9 [Suspect]
     Indication: IRON DEFICIENCY ANAEMIA
     Dosage: 2 DF, DAILY
     Route: 048
     Dates: start: 20130805
  6. CORTANCYL [Concomitant]
     Indication: SYSTEMIC LUPUS ERYTHEMATOSUS
     Dosage: 5 MG X 2, DAILY
  7. PLAQUENIL [Concomitant]
     Indication: SYSTEMIC LUPUS ERYTHEMATOSUS
     Dosage: 200 MG, 2X/DAY
  8. COLCHICINE OPOCALCIUM [Concomitant]
     Indication: SCLERODERMA
     Dosage: 1 MG, DAILY
  9. MOTILIUM [Concomitant]
     Indication: BARRETT^S OESOPHAGUS
     Dosage: 10 MG, DAILY
  10. PIASCLEDINE [Concomitant]
     Dosage: 300 MG, 1X/DAY
     Dates: end: 20130814
  11. DIFFU K [Concomitant]
     Indication: HYPOKALAEMIA
     Dosage: 600 MG, 3X/DAY
  12. CALCIUM, COLECALCIFEROL [Concomitant]
     Indication: HYPOVITAMINOSIS
     Dosage: 500MG/400IU X2, DAILY

REACTIONS (13)
  - Histiocytosis haematophagic [Recovering/Resolving]
  - Hepatocellular injury [Recovering/Resolving]
  - Cholestasis [Recovering/Resolving]
  - Pancytopenia [Recovering/Resolving]
  - Hyponatraemia [Recovering/Resolving]
  - Lipase increased [Recovering/Resolving]
  - General physical health deterioration [Recovering/Resolving]
  - Asthenia [Unknown]
  - Apathy [Recovered/Resolved]
  - Duodenal ulcer [Unknown]
  - Amnestic disorder [Recovered/Resolved]
  - Hypertriglyceridaemia [Recovered/Resolved]
  - Cholelithiasis [Recovering/Resolving]
